FAERS Safety Report 18615102 (Version 1)
Quarter: 2020Q4

REPORT INFORMATION
  Report Type: Spontaneous
  Country: US (occurrence: US)
  Receive Date: 20201215
  Receipt Date: 20201215
  Transmission Date: 20210114
  Serious: No
  Sender: FDA-Public Use
  Company Number: US-BAUSCH-BL-2020-035042

PATIENT
  Sex: Female

DRUGS (2)
  1. LOTEPREDNOL ETABONATE [Suspect]
     Active Substance: LOTEPREDNOL ETABONATE
     Indication: PRODUCT USED FOR UNKNOWN INDICATION
     Route: 047
  2. OXERVATE [Concomitant]
     Active Substance: CENEGERMIN-BKBJ
     Indication: BLINDNESS
     Dosage: WAS THEN PUT ON A 8 WEEKS COURSE FOR OXERVATE

REACTIONS (2)
  - Hyperhidrosis [Unknown]
  - Feeling hot [Unknown]
